FAERS Safety Report 4569581-1 (Version None)
Quarter: 2005Q1

REPORT INFORMATION
  Report Type: 
  Country: None (occurrence: None)
  Receive Date: 20050201
  Receipt Date: 20050121
  Transmission Date: 20050727
  Serious: Yes (Other)
  Sender: FDA-Public Use
  Company Number: 200510138GDS

PATIENT
  Sex: Male

DRUGS (1)
  1. NIMOTOP [Suspect]
     Dosage: INTRAVENOUS
     Route: 042

REACTIONS (5)
  - ARTERIAL SPASM [None]
  - CATHETER RELATED COMPLICATION [None]
  - NERVOUS SYSTEM DISORDER [None]
  - POST PROCEDURAL COMPLICATION [None]
  - PROCEDURAL COMPLICATION [None]
